FAERS Safety Report 16454159 (Version 1)
Quarter: 2019Q2

REPORT INFORMATION
  Report Type: Spontaneous
  Country: US (occurrence: US)
  Receive Date: 20190620
  Receipt Date: 20190620
  Transmission Date: 20190711
  Serious: No
  Sender: FDA-Public Use
  Company Number: US-TEVA-2018-US-961754

PATIENT
  Age: 29 Year
  Sex: Female

DRUGS (5)
  1. FUROSEMIDE. [Suspect]
     Active Substance: FUROSEMIDE
     Indication: PORTAL HYPERTENSION
     Route: 065
  2. PROPRANOLOL [Suspect]
     Active Substance: PROPRANOLOL HYDROCHLORIDE
     Indication: PORTAL HYPERTENSION
     Route: 065
  3. SPIRONOLACTONE. [Suspect]
     Active Substance: SPIRONOLACTONE
     Indication: PORTAL HYPERTENSION
     Route: 065
  4. IRON SUPPLEMENT [Suspect]
     Active Substance: IRON
     Indication: SUPPLEMENTATION THERAPY
     Route: 065
  5. ENOXAPARIN [Suspect]
     Active Substance: ENOXAPARIN
     Indication: PORTAL HYPERTENSION
     Dosage: 40 MILLIGRAM DAILY;
     Route: 058

REACTIONS (1)
  - Exposure during pregnancy [Unknown]
